FAERS Safety Report 13468739 (Version 2)
Quarter: 2017Q2

REPORT INFORMATION
  Report Type: Spontaneous
  Country: DE (occurrence: DE)
  Receive Date: 20170421
  Receipt Date: 20170425
  Transmission Date: 20170830
  Serious: No
  Sender: FDA-Public Use
  Company Number: DE-ALLERGAN-1713215US

PATIENT
  Sex: Female

DRUGS (1)
  1. CONSTELLA [Suspect]
     Active Substance: LINACLOTIDE
     Indication: IRRITABLE BOWEL SYNDROME
     Dosage: 290 ?G, UNK
     Route: 065

REACTIONS (1)
  - Abdominal pain [Unknown]
